FAERS Safety Report 6573250-6 (Version None)
Quarter: 2010Q1

REPORT INFORMATION
  Report Type: 
  Country: None (occurrence: None)
  Receive Date: 20100208
  Receipt Date: 20100201
  Transmission Date: 20100710
  Serious: Yes (Hospitalization, Other)
  Sender: FDA-Public Use
  Company Number: GR-MILLENNIUM PHARMACEUTICALS, INC.-2009-05403

PATIENT

DRUGS (7)
  1. VELCADE [Suspect]
     Indication: MULTIPLE MYELOMA
     Dosage: 2 MG, CYCLIC
     Route: 042
     Dates: start: 20091015
  2. CYCLOPHOSPHAMIDE [Suspect]
     Indication: MULTIPLE MYELOMA
     Dosage: 650 MG, UNK
     Route: 042
     Dates: start: 20091015
  3. CARBOPLATIN [Suspect]
     Indication: MULTIPLE MYELOMA
     Dosage: 54 MG, UNK
     Route: 042
     Dates: start: 20091015
  4. ETOPOSIDE [Suspect]
     Indication: MULTIPLE MYELOMA
     Dosage: 60 MG, UNK
     Route: 042
     Dates: start: 20091015
  5. EPIRUBICIN HYDROCHLORIDE [Suspect]
     Indication: MULTIPLE MYELOMA
     Dosage: 22 MG, UNK
     Route: 042
     Dates: start: 20091015
  6. DEXAMETHASONE [Suspect]
     Indication: MULTIPLE MYELOMA
     Dosage: 64 MG, MONTHLY
     Route: 048
     Dates: start: 20091015
  7. EPOETIN ALFA [Concomitant]

REACTIONS (3)
  - ABDOMINAL DISCOMFORT [None]
  - ABDOMINAL DISTENSION [None]
  - FEBRILE NEUTROPENIA [None]
